FAERS Safety Report 20802396 (Version 1)
Quarter: 2022Q2

REPORT INFORMATION
  Report Type: Spontaneous
  Country: US (occurrence: None)
  Receive Date: 20220506
  Receipt Date: 20220506
  Transmission Date: 20220721
  Serious: Yes (Other)
  Sender: FDA-Public Use
  Company Number: None

PATIENT
  Age: 63 Year
  Sex: Female
  Weight: 94.5 kg

DRUGS (20)
  1. AJOVY [Suspect]
     Active Substance: FREMANEZUMAB-VFRM
     Indication: Migraine
     Dosage: OTHER QUANTITY : 1 AUTOINJECTOR;?OTHER FREQUENCY : ONCE MONTHLY;?
     Route: 058
     Dates: start: 20220102, end: 20220302
  2. BUPROPION [Concomitant]
     Active Substance: BUPROPION
  3. buspirine [Concomitant]
  4. FIORICET [Concomitant]
     Active Substance: ACETAMINOPHEN\BUTALBITAL\CAFFEINE
  5. CETIRIZINE [Concomitant]
     Active Substance: CETIRIZINE HYDROCHLORIDE
  6. CYCLOBENZAPRINE [Concomitant]
     Active Substance: CYCLOBENZAPRINE
  7. DULOXETINE [Concomitant]
     Active Substance: DULOXETINE
  8. FLUTICASONE [Concomitant]
     Active Substance: FLUTICASONE
  9. FUROSEMIDE [Concomitant]
     Active Substance: FUROSEMIDE
  10. GABAPENTIN [Concomitant]
     Active Substance: GABAPENTIN
  11. JANUMET [Concomitant]
     Active Substance: METFORMIN HYDROCHLORIDE\SITAGLIPTIN PHOSPHATE
  12. LISINOPRIL [Concomitant]
     Active Substance: LISINOPRIL
  13. LOVASTATIN [Concomitant]
     Active Substance: LOVASTATIN
  14. MELOXICAM [Concomitant]
     Active Substance: MELOXICAM
  15. OMEPRAZOLE [Concomitant]
     Active Substance: OMEPRAZOLE
  16. proair inhaler [Concomitant]
  17. RIZATRIPTAN [Concomitant]
     Active Substance: RIZATRIPTAN
  18. TRAZODONE [Concomitant]
     Active Substance: TRAZODONE HYDROCHLORIDE
  19. ASPIRIN [Concomitant]
     Active Substance: ASPIRIN
  20. multivitamin with iron [Concomitant]

REACTIONS (3)
  - Madarosis [None]
  - Alopecia [None]
  - Alopecia [None]

NARRATIVE: CASE EVENT DATE: 20220307
